FAERS Safety Report 11606104 (Version 1)
Quarter: 2015Q4

REPORT INFORMATION
  Report Type: Report from Study
  Country: CA (occurrence: CA)
  Receive Date: 20151007
  Receipt Date: 20151007
  Transmission Date: 20160304
  Serious: Yes (Other)
  Sender: FDA-Public Use
  Company Number: CA-INCYTE CORPORATION-2013IN002405

PATIENT
  Sex: Female

DRUGS (2)
  1. JAKAFI [Suspect]
     Active Substance: RUXOLITINIB
     Indication: MYELOFIBROSIS
     Dosage: 20 MG, BID
     Route: 048
     Dates: start: 201307, end: 20140403
  2. NAPROXEN. [Concomitant]
     Active Substance: NAPROXEN
     Indication: PRODUCT USED FOR UNKNOWN INDICATION
     Route: 065

REACTIONS (12)
  - Fatigue [Unknown]
  - Asthenia [Unknown]
  - Night sweats [Unknown]
  - Arthralgia [Unknown]
  - Graft versus host disease [Unknown]
  - Grip strength decreased [Unknown]
  - Muscular weakness [Unknown]
  - Blood lactate dehydrogenase increased [Unknown]
  - Bone pain [Unknown]
  - Pain in extremity [Unknown]
  - Gait disturbance [Unknown]
  - Dyspnoea [Unknown]
